FAERS Safety Report 23827934 (Version 1)
Quarter: 2024Q2

REPORT INFORMATION
  Report Type: Spontaneous
  Country: US (occurrence: US)
  Receive Date: 20240507
  Receipt Date: 20240507
  Transmission Date: 20240716
  Serious: No
  Sender: FDA-Public Use
  Company Number: US-JNJFOC-20240478992

PATIENT
  Age: 92 Year
  Sex: Male

DRUGS (3)
  1. ERLEADA [Suspect]
     Active Substance: APALUTAMIDE
     Indication: Prostate cancer
     Route: 048
  2. PEMBROLIZUMAB [Concomitant]
     Active Substance: PEMBROLIZUMAB
     Indication: Neoplasm malignant
  3. LUPRON [Concomitant]
     Active Substance: LEUPROLIDE ACETATE
     Indication: Prostate cancer

REACTIONS (1)
  - Dysphonia [Unknown]
